FAERS Safety Report 6575745-8 (Version None)
Quarter: 2010Q1

REPORT INFORMATION
  Report Type: 
  Country: None (occurrence: None)
  Receive Date: 20100209
  Receipt Date: 20100129
  Transmission Date: 20100710
  Serious: No
  Sender: FDA-Public Use
  Company Number: US-BAYER-201013071NA

PATIENT
  Age: 58 Year
  Sex: Male
  Weight: 119 kg

DRUGS (1)
  1. MAGNEVIST [Suspect]
     Indication: DEAFNESS
     Dosage: TOTAL DAILY DOSE: 20 ML  UNIT DOSE: 20 ML
     Route: 042
     Dates: start: 20100125, end: 20100125

REACTIONS (2)
  - ASTHENIA [None]
  - CHEST DISCOMFORT [None]
